FAERS Safety Report 13353427 (Version 1)
Quarter: 2017Q1

REPORT INFORMATION
  Report Type: Spontaneous
  Country: FR (occurrence: FR)
  Receive Date: 20170321
  Receipt Date: 20170321
  Transmission Date: 20170429
  Serious: Yes (Life-Threatening, Hospitalization)
  Sender: FDA-Public Use
  Company Number: FR-ACCORD-049274

PATIENT
  Age: 89 Year
  Sex: Female

DRUGS (7)
  1. UVEDOSE [Concomitant]
     Active Substance: CHOLECALCIFEROL
     Dosage: EVERY THREE MONTHS
  2. GEMCITABINE INTAS [Suspect]
     Active Substance: GEMCITABINE HYDROCHLORIDE
     Indication: ADENOCARCINOMA PANCREAS
     Dosage: STRENGTH: 100 MG/ML, ONCE PER ONE CYCLE, 25 INJECTIONS, 1000 MG/M^2 ON DAY 1, 8 AND 15
     Route: 042
     Dates: start: 20160520, end: 20170106
  3. SOLU-MEDROL [Concomitant]
     Active Substance: METHYLPREDNISOLONE SODIUM SUCCINATE
     Indication: PREMEDICATION
     Dosage: DAY 1 OF FIRST CYCLE WAS GIVEN ON 20-MAY-2016 AND CYCLE NINE ON 06-JAN-2017
     Route: 042
     Dates: start: 20160520
  4. COZAAR [Concomitant]
     Active Substance: LOSARTAN POTASSIUM
  5. ZOPHREN [Concomitant]
     Active Substance: ONDANSETRON
     Indication: PREMEDICATION
     Dosage: DAY 1 OF FIRST CYCLE WAS GIVEN ON 20-MAY-2016 AND CYCLE NINE ON 06-JAN-2017
     Route: 042
     Dates: start: 20160520
  6. TENORMIN [Concomitant]
     Active Substance: ATENOLOL
  7. FORLAX [Concomitant]
     Active Substance: POLYETHYLENE GLYCOL 4000
     Dosage: IF NEEDED

REACTIONS (4)
  - Pulmonary fibrosis [Unknown]
  - Acute respiratory distress syndrome [Unknown]
  - Cardiac failure [Recovering/Resolving]
  - Haemoptysis [Unknown]

NARRATIVE: CASE EVENT DATE: 20170103
